FAERS Safety Report 4432677-9 (Version None)
Quarter: 2004Q3

REPORT INFORMATION
  Report Type: 
  Country: None (occurrence: None)
  Receive Date: 20040820
  Receipt Date: 20040809
  Transmission Date: 20050211
  Serious: No
  Sender: FDA-Public Use
  Company Number: 2004AP03227

PATIENT
  Age: 34 Year
  Sex: Female
  Weight: 51.7 kg

DRUGS (1)
  1. XYLOCAINE [Suspect]
     Indication: LOCAL ANAESTHESIA
     Dosage: 100 MG SQ
     Dates: start: 20040611, end: 20040611

REACTIONS (4)
  - ANAESTHETIC COMPLICATION [None]
  - ANAPHYLACTIC REACTION [None]
  - FEELING ABNORMAL [None]
  - LARYNGEAL OEDEMA [None]
